FAERS Safety Report 15891597 (Version 1)
Quarter: 2019Q1

REPORT INFORMATION
  Report Type: Report from Study
  Country: JP (occurrence: JP)
  Receive Date: 20190130
  Receipt Date: 20190130
  Transmission Date: 20190417
  Serious: Yes (Death)
  Sender: FDA-Public Use
  Company Number: PHHY2013JP174403

PATIENT
  Age: 64 Year
  Sex: Female
  Weight: 60 kg

DRUGS (1)
  1. VOTRIENT [Suspect]
     Active Substance: PAZOPANIB HYDROCHLORIDE
     Indication: LEIOMYOSARCOMA METASTATIC
     Dosage: 800 MG, QD
     Route: 048
     Dates: start: 20121213, end: 20130613

REACTIONS (5)
  - Decreased appetite [Recovered/Resolved]
  - Tinnitus [Recovered/Resolved]
  - Leiomyosarcoma metastatic [Fatal]
  - Dizziness [Recovered/Resolved]
  - Dysphonia [Recovered/Resolved]

NARRATIVE: CASE EVENT DATE: 20130108
